FAERS Safety Report 12130676 (Version 1)
Quarter: 2016Q1

REPORT INFORMATION
  Report Type: Spontaneous
  Country: US (occurrence: None)
  Receive Date: 20160229
  Receipt Date: 20160229
  Transmission Date: 20160526
  Serious: No
  Sender: FDA-Public Use
  Company Number: None

PATIENT
  Age: 45 Year
  Sex: Female
  Weight: 56.7 kg

DRUGS (7)
  1. CHROMIUM [Concomitant]
     Active Substance: CHROMIC CHLORIDE\CHROMIUM
  2. VITAMIN C [Concomitant]
     Active Substance: ASCORBIC ACID
  3. SCOPOLAMINE [Suspect]
     Active Substance: SCOPOLAMINE
     Indication: SURGERY
     Dosage: APPLIED AS MEDICATED PATCH TO SKIN?
     Route: 061
     Dates: start: 20160223, end: 20160225
  4. MULTIVITAMIN [Concomitant]
     Active Substance: VITAMINS
  5. SENNA [Concomitant]
     Active Substance: SENNA LEAF\SENNOSIDES\SENNOSIDES A AND B
  6. PSYLLIUM [Concomitant]
     Active Substance: PLANTAGO SEED
  7. HAIRSKINNAIL SUPPLEMENT [Concomitant]

REACTIONS (1)
  - Vision blurred [None]

NARRATIVE: CASE EVENT DATE: 20160225
